FAERS Safety Report 19696247 (Version 1)
Quarter: 2021Q3

REPORT INFORMATION
  Report Type: Other
  Country: US (occurrence: US)
  Receive Date: 20210812
  Receipt Date: 20210812
  Transmission Date: 20211014
  Serious: Yes (Other)
  Sender: FDA-Public Use
  Company Number: US-APOTEX-2021AP033708

PATIENT
  Age: 62 Year
  Sex: Male

DRUGS (4)
  1. ZANTAC [Suspect]
     Active Substance: RANITIDINE HYDROCHLORIDE
     Indication: NAUSEA
     Dosage: DAILY (WEEKLY/OCCASIONAL/PERIODS OF NON?USE)
     Route: 065
     Dates: start: 198901, end: 201912
  2. ZANTAC [Suspect]
     Active Substance: RANITIDINE HYDROCHLORIDE
     Indication: NAUSEA
     Dosage: DAILY (WEEKLY/OCCASIONAL/PERIODS OF NON?USE)
     Route: 065
     Dates: start: 198901, end: 201912
  3. RANITIDINE. [Suspect]
     Active Substance: RANITIDINE
     Indication: NAUSEA
     Dosage: DAILY (WEEKLY/OCCASIONAL/PERIODS OF NON?USE)
     Route: 065
     Dates: start: 198901, end: 201912
  4. RANITIDINE TABLETS [Suspect]
     Active Substance: RANITIDINE HYDROCHLORIDE
     Indication: NAUSEA
     Dosage: DAILY (WEEKLY/OCCASIONAL/PERIODS OF NON?USE)
     Route: 065
     Dates: start: 198901, end: 201912

REACTIONS (2)
  - Bladder cancer [Unknown]
  - Oesophageal carcinoma [Unknown]

NARRATIVE: CASE EVENT DATE: 20180801
